FAERS Safety Report 6092288-9 (Version None)
Quarter: 2009Q1

REPORT INFORMATION
  Report Type: 
  Country: None (occurrence: None)
  Receive Date: 20090225
  Receipt Date: 20090219
  Transmission Date: 20090719
  Serious: Yes (Other)
  Sender: FDA-Public Use
  Company Number: B0558409A

PATIENT
  Age: 13 Year
  Sex: Female

DRUGS (1)
  1. RELENZA [Suspect]
     Indication: DRUG USE FOR UNKNOWN INDICATION
     Route: 055
     Dates: start: 20090204, end: 20090204

REACTIONS (3)
  - ABNORMAL BEHAVIOUR [None]
  - INCOHERENT [None]
  - RESTLESSNESS [None]
